FAERS Safety Report 18898239 (Version 2)
Quarter: 2021Q1

REPORT INFORMATION
  Report Type: Report from Study
  Country: US (occurrence: US)
  Receive Date: 20210216
  Receipt Date: 20210314
  Transmission Date: 20210420
  Serious: Yes (Hospitalization)
  Sender: FDA-Public Use
  Company Number: US-ROCHE-2765120

PATIENT
  Age: 57 Year
  Sex: Male
  Weight: 69 kg

DRUGS (5)
  1. OBINUTUZUMAB. [Suspect]
     Active Substance: OBINUTUZUMAB
     Indication: CHRONIC LYMPHOCYTIC LEUKAEMIA
     Dosage: ON DAY 1, CYCLE 1
     Route: 042
     Dates: start: 20200804
  2. OBINUTUZUMAB. [Suspect]
     Active Substance: OBINUTUZUMAB
     Dosage: ON DAY 2, CYCLE 1
     Route: 042
  3. IBRUTINIB [Suspect]
     Active Substance: IBRUTINIB
     Indication: CHRONIC LYMPHOCYTIC LEUKAEMIA
     Dosage: ON DAYS 1?28.?ON 23/NOV/2020 AND 17/DEC/2020, HE RECEIVED MOST RECENT 3360 MG DOSE OF IBRUTINIB PRIO
     Route: 048
     Dates: start: 20200804
  4. OBINUTUZUMAB. [Suspect]
     Active Substance: OBINUTUZUMAB
     Dosage: ON DAY 2, CYCLE 1
     Route: 042
  5. OBINUTUZUMAB. [Suspect]
     Active Substance: OBINUTUZUMAB
     Dosage: ON DAY 8, CYCLE 1, 1000 MG IV ON DAY 15, CYCLE 1, 1000 MG IV ON DAY 1, CYCLE 2?6?ON 29/OCT/2020, HE
     Route: 042

REACTIONS (1)
  - COVID-19 [Not Recovered/Not Resolved]

NARRATIVE: CASE EVENT DATE: 20201202
